FAERS Safety Report 8058902-3 (Version None)
Quarter: 2012Q1

REPORT INFORMATION
  Report Type: 
  Country: None (occurrence: None)
  Receive Date: 20120120
  Receipt Date: 20111005
  Transmission Date: 20120608
  Serious: No
  Sender: FDA-Public Use
  Company Number: US-BRISTOL-MYERS SQUIBB COMPANY-16135246

PATIENT
  Age: 46 Year
  Sex: Male

DRUGS (3)
  1. DEXAMETHASONE TAB [Concomitant]
  2. YERVOY [Suspect]
     Dates: start: 20110101
  3. HYDROCODONE BITARTRATE [Concomitant]

REACTIONS (2)
  - LOCAL SWELLING [None]
  - ABDOMINAL PAIN UPPER [None]
